FAERS Safety Report 15116757 (Version 1)
Quarter: 2018Q2

REPORT INFORMATION
  Report Type: Spontaneous
  Country: US (occurrence: US)
  Receive Date: 20180612
  Receipt Date: 20180612
  Transmission Date: 20180711
  Serious: Yes (Hospitalization)
  Sender: FDA-Public Use
  Company Number: None

PATIENT
  Age: 65 Year
  Sex: Female

DRUGS (24)
  1. HYDROXYCHLOR [Concomitant]
     Active Substance: HYDROXYCHLOROQUINE
  2. LINZESS [Concomitant]
     Active Substance: LINACLOTIDE
  3. TUDORZA PRES AER [Concomitant]
  4. MONTELUKAST [Concomitant]
     Active Substance: MONTELUKAST SODIUM
  5. ENBREL [Suspect]
     Active Substance: ETANERCEPT
     Indication: RHEUMATOID ARTHRITIS
     Dosage: ON HOLD
     Route: 058
     Dates: start: 20150318
  6. SENNA [Concomitant]
     Active Substance: SENNA LEAF\SENNOSIDES\SENNOSIDES A AND B
  7. REGLAN [Concomitant]
     Active Substance: METOCLOPRAMIDE HYDROCHLORIDE
  8. DICLOFENAC GEL 1% [Concomitant]
     Active Substance: DICLOFENAC
  9. ADVAIR DISKU AER [Concomitant]
  10. PROAIR HFA AER [Concomitant]
  11. DESVENLAFAX [Concomitant]
  12. NEXIUM [Concomitant]
     Active Substance: ESOMEPRAZOLE MAGNESIUM
  13. AMPICILLIN [Concomitant]
     Active Substance: AMPICILLIN
  14. AMITIZA [Concomitant]
     Active Substance: LUBIPROSTONE
  15. DESVENLAFAX [Concomitant]
  16. PRISTIQ EXTENDED-RELEASE [Concomitant]
     Active Substance: DESVENLAFAXINE SUCCINATE
  17. PRAVASTATIN. [Concomitant]
     Active Substance: PRAVASTATIN
  18. CIPROFLOXACIN. [Concomitant]
     Active Substance: CIPROFLOXACIN
  19. ESOMEPRA MAG [Concomitant]
  20. TRULANCE [Concomitant]
     Active Substance: PLECANATIDE
  21. DIAZEPAM. [Concomitant]
     Active Substance: DIAZEPAM
  22. ALBUTEROL. [Concomitant]
     Active Substance: ALBUTEROL
  23. RANITIDINE. [Concomitant]
     Active Substance: RANITIDINE
  24. ANORO ELLIPT AER [Concomitant]

REACTIONS (2)
  - Infection [None]
  - Diverticulitis [None]
